FAERS Safety Report 14285451 (Version 1)
Quarter: 2017Q4

REPORT INFORMATION
  Report Type: Spontaneous
  Country: US (occurrence: US)
  Receive Date: 20171214
  Receipt Date: 20171214
  Transmission Date: 20180321
  Serious: Yes (Hospitalization, Other)
  Sender: FDA-Public Use
  Company Number: None

PATIENT
  Age: 18 Year
  Sex: Female
  Weight: 57.6 kg

DRUGS (1)
  1. MIRENA [Suspect]
     Active Substance: LEVONORGESTREL
     Indication: CONTRACEPTION
     Dosage: ?          OTHER FREQUENCY:PLACED ONCE;OTHER ROUTE:INTRAUTERINE?
     Dates: start: 20171208, end: 20171209

REACTIONS (3)
  - Pelvic inflammatory disease [None]
  - Sepsis [None]
  - Streptococcal infection [None]

NARRATIVE: CASE EVENT DATE: 20171209
